FAERS Safety Report 12076913 (Version 1)
Quarter: 2016Q1

REPORT INFORMATION
  Report Type: Spontaneous
  Country: US (occurrence: US)
  Receive Date: 20160215
  Receipt Date: 20160215
  Transmission Date: 20160526
  Serious: No
  Sender: FDA-Public Use
  Company Number: US-BAYER-2016-029381

PATIENT
  Age: 81 Year
  Sex: Male
  Weight: 68.27 kg

DRUGS (2)
  1. MIRALAX [Suspect]
     Active Substance: POLYETHYLENE GLYCOL 3350
     Indication: CONSTIPATION
     Dosage: 1 DF, PRN
     Route: 048
     Dates: start: 2014
  2. FINASTERIDE. [Concomitant]
     Active Substance: FINASTERIDE
     Indication: CONSTIPATION

REACTIONS (2)
  - Expired product administered [None]
  - Product use issue [None]
